FAERS Safety Report 8941513 (Version 5)
Quarter: 2013Q1

REPORT INFORMATION
  Report Type: Report from Study
  Country: HU (occurrence: HU)
  Receive Date: 20121203
  Receipt Date: 20130329
  Transmission Date: 20140127
  Serious: Yes (Death, Hospitalization)
  Sender: FDA-Public Use
  Company Number: HU-B.I. PHARMACEUTICALS,INC./RIDGEFIELD-2012-AP-01050AP

PATIENT
  Age: 58 Year
  Sex: Female
  Weight: 59 kg

DRUGS (2)
  1. SPIRIVA [Suspect]
     Indication: CHRONIC OBSTRUCTIVE PULMONARY DISEASE
     Dosage: 18 MCG
     Route: 055
     Dates: start: 20100505
  2. ATIMOS [Concomitant]
     Indication: CHRONIC OBSTRUCTIVE PULMONARY DISEASE
     Dosage: 12 MCG
     Route: 055
     Dates: start: 20100505

REACTIONS (5)
  - Lung adenocarcinoma [Fatal]
  - Metastases to lymph nodes [Not Recovered/Not Resolved]
  - Venous thrombosis limb [Recovered/Resolved with Sequelae]
  - Pain [Not Recovered/Not Resolved]
  - Anaemia [Not Recovered/Not Resolved]
